FAERS Safety Report 13287168 (Version 1)
Quarter: 2017Q1

REPORT INFORMATION
  Report Type: Spontaneous
  Country: ES (occurrence: ES)
  Receive Date: 20170302
  Receipt Date: 20170302
  Transmission Date: 20170428
  Serious: Yes (Death, Hospitalization, Other)
  Sender: FDA-Public Use
  Company Number: ES-BAYER-2017-036324

PATIENT
  Sex: Male

DRUGS (1)
  1. NEXAVAR [Suspect]
     Active Substance: SORAFENIB
     Indication: HEPATOCELLULAR CARCINOMA
     Dosage: UNK
     Dates: start: 20120807, end: 201301

REACTIONS (8)
  - Hepatocellular carcinoma [Not Recovered/Not Resolved]
  - Hepatic encephalopathy [Unknown]
  - Alpha 1 foetoprotein increased [Unknown]
  - Asthenia [Unknown]
  - Fluid retention [Unknown]
  - Muscle spasms [Unknown]
  - Decreased appetite [Unknown]
  - Death [Fatal]

NARRATIVE: CASE EVENT DATE: 201211
